FAERS Safety Report 18819775 (Version 1)
Quarter: 2021Q1

REPORT INFORMATION
  Report Type: Spontaneous
  Country: US (occurrence: US)
  Receive Date: 20210202
  Receipt Date: 20210202
  Transmission Date: 20210419
  Serious: No
  Sender: FDA-Public Use
  Company Number: US-SA-2021SA022356

PATIENT

DRUGS (1)
  1. DUPIXENT [Suspect]
     Active Substance: DUPILUMAB
     Indication: BLOOD PRESSURE ABNORMAL
     Dosage: UNK

REACTIONS (1)
  - Off label use [Unknown]
